FAERS Safety Report 9749380 (Version 2)
Quarter: 2013Q4

REPORT INFORMATION
  Report Type: Spontaneous
  Country: SG (occurrence: None)
  Receive Date: 20131209
  Receipt Date: 20131209
  Transmission Date: 20140711
  Serious: Yes (Hospitalization)
  Sender: FDA-Public Use
  Company Number: SYM-2013-13392

PATIENT
  Age: 58 Year
  Sex: Male

DRUGS (17)
  1. 5 FU (FLUOROURACIL) (SOLUTION FOR INFUSION) (FLUOROURACIL) [Suspect]
     Indication: COLORECTAL CANCER METASTATIC
     Route: 040
     Dates: start: 20130701, end: 20130701
  2. BLINDED THERAPY (OTHER THERAPEUTIC PRODUCTS) (SOLUTION FOR INFUSION) (NULL) [Suspect]
     Indication: COLORECTAL CANCER METASTATIC
     Route: 041
     Dates: start: 20130701, end: 20130701
  3. IRINOTECAN (IRINOTECAN) (SOLUTION FOR INFUSION) (IRINOTECAN) [Suspect]
     Indication: COLORECTAL CANCER METASTATIC
     Route: 041
     Dates: start: 20130701, end: 20130701
  4. LEUCOVORIN [Suspect]
     Indication: COLORECTAL CANCER METASTATIC
     Route: 041
     Dates: start: 20130701, end: 20130701
  5. SIMVASTATIN (SIMVASTATIN) (SIMVASTATIN) [Concomitant]
  6. ENALAPRIL MALEATE (ENALAPRIL MALEATE) (ENALAPRIL MALEATE) [Concomitant]
  7. METFORMIN (METFORMIN) [Concomitant]
  8. SANGOBION (SANGOBION /03331001/) (ASCORBIC ACID, FOLIC ACID, CYANOCOBALAMIN, FERROUS GLUCONATE, COPPER SULFATE, MANGANESE SULFATE, INTRINSIC FACTOR) [Concomitant]
  9. OMEPRAZOLE (OMEPRAZOLE) (OMEPRAZOLE) [Concomitant]
  10. ESCITALOPRAM (ESCITALOPRAM) (ESCITALOPRAM) [Concomitant]
  11. ATROPINE (ATROPINE) (ATROPINE) [Concomitant]
  12. RANITIDINE (RANITIDINE) (RANITIDINE) [Concomitant]
  13. ONDANSETRON (ONDANSETRON) (ONDANSETRON) [Concomitant]
  14. DEXAMETHASONE (DEXAMETHASONE) (DEXAMETHASONE) [Concomitant]
  15. BENADRYL (DIPHENHYDRAMINE HYDROCHLORIDE) (DIPHENHYDRAMINE HYDROCHLORIDE) [Concomitant]
  16. PARACETAMOL (PARACETAMOL) (PARACETAMOL) [Concomitant]
  17. PROCODIN (PROMETHAZINE W/CODEINE /01129901/) (CODEINE PHOSPHATE, PROMETHAZINE HYDROCHLORIDE) [Concomitant]

REACTIONS (10)
  - Colitis [None]
  - Abdominal pain [None]
  - Nausea [None]
  - Vomiting [None]
  - Haematochezia [None]
  - Infection [None]
  - Gastrointestinal inflammation [None]
  - Gastrointestinal infection [None]
  - Gastrointestinal ischaemia [None]
  - Clostridium difficile colitis [None]
